FAERS Safety Report 14824267 (Version 1)
Quarter: 2018Q2

REPORT INFORMATION
  Report Type: Spontaneous
  Country: US (occurrence: US)
  Receive Date: 20180429
  Receipt Date: 20180429
  Transmission Date: 20180711
  Serious: No
  Sender: FDA-Public Use
  Company Number: US-JNJFOC-20180416295

PATIENT
  Age: 61 Year
  Sex: Male
  Weight: 72.58 kg

DRUGS (1)
  1. INVEGA SUSTENNA [Suspect]
     Active Substance: PALIPERIDONE PALMITATE
     Indication: SCHIZOPHRENIA
     Route: 030
     Dates: start: 201506

REACTIONS (6)
  - Treatment noncompliance [Unknown]
  - Irritability [Not Recovered/Not Resolved]
  - Imprisonment [Unknown]
  - Psychomotor hyperactivity [Not Recovered/Not Resolved]
  - Drug dose omission [Unknown]
  - Agitation [Not Recovered/Not Resolved]

NARRATIVE: CASE EVENT DATE: 20180411
